FAERS Safety Report 4981206-X (Version None)
Quarter: 2006Q2

REPORT INFORMATION
  Report Type: 
  Country: None (occurrence: None)
  Receive Date: 20060424
  Receipt Date: 20060410
  Transmission Date: 20061013
  Serious: Yes (Hospitalization)
  Sender: FDA-Public Use
  Company Number: ITWYE544810APR06

PATIENT
  Sex: Female

DRUGS (6)
  1. ENBREL [Suspect]
     Indication: RHEUMATOID ARTHRITIS
     Route: 058
     Dates: start: 20050321, end: 20060216
  2. FOLIC ACID [Concomitant]
     Dosage: 5 MG
     Route: 048
  3. MEDROL [Concomitant]
     Dosage: 8 MG
     Route: 048
  4. ACTONEL [Concomitant]
     Dosage: 35 MG
     Route: 048
  5. VITAMIN D3 [Concomitant]
     Dosage: 500 MG
     Route: 048
  6. METHOTREXATE SODIUM [Concomitant]

REACTIONS (1)
  - MYASTHENIA GRAVIS [None]
